FAERS Safety Report 24966486 (Version 2)
Quarter: 2025Q1

REPORT INFORMATION
  Report Type: Report from Study
  Country: US (occurrence: US)
  Receive Date: 20250213
  Receipt Date: 20250228
  Transmission Date: 20250409
  Serious: Yes (Death, Hospitalization)
  Sender: BAYER HEALTHCARE PHARMACEUTICALS INC.
  Company Number: US-BAYER-2025A020949

PATIENT
  Age: 88 Year
  Sex: Male

DRUGS (3)
  1. NUBEQA [Suspect]
     Active Substance: DAROLUTAMIDE
     Indication: Prostate cancer
     Dates: start: 202308, end: 202312
  2. NUBEQA [Suspect]
     Active Substance: DAROLUTAMIDE
     Indication: Prostate cancer
     Dates: start: 20231223, end: 20240919
  3. DOCETAXEL [Concomitant]
     Active Substance: DOCETAXEL
     Dates: start: 202308, end: 202312

REACTIONS (2)
  - Pneumonia [Fatal]
  - Prostate cancer [Not Recovered/Not Resolved]
